FAERS Safety Report 9437249 (Version 2)
Quarter: 2013Q3

REPORT INFORMATION
  Report Type: Spontaneous
  Country: US (occurrence: None)
  Receive Date: 20130731
  Receipt Date: 20130816
  Transmission Date: 20140515
  Serious: Yes (Death)
  Sender: FDA-Public Use
  Company Number: ADR-2013UNK139

PATIENT
  Age: 63 Day
  Sex: 0

DRUGS (2)
  1. NEVIRAPINE TABLETS/ HETERO LABS, LTD [Suspect]
     Indication: ACQUIRED IMMUNODEFICIENCY SYNDROME
     Route: 048
     Dates: start: 20100407
  2. TRUVADA, TVD [Concomitant]

REACTIONS (3)
  - Abortion spontaneous [None]
  - Foetal exposure during pregnancy [None]
  - Twin pregnancy [None]
